FAERS Safety Report 8613898-8 (Version None)
Quarter: 2012Q3

REPORT INFORMATION
  Report Type: 
  Country: None (occurrence: None)
  Receive Date: 20120823
  Receipt Date: 20120810
  Transmission Date: 20120928
  Serious: Yes (Other)
  Sender: FDA-Public Use
  Company Number: GB-009507513-1208GBR006353

PATIENT

DRUGS (5)
  1. DOUBLEBASE [Concomitant]
     Dosage: 1 DF, QID
  2. MIRTAZAPINE [Suspect]
     Indication: DEPRESSION
  3. QUININE SULFATE [Concomitant]
     Indication: MUSCLE SPASMS
     Dosage: 30 MG, UNK
     Route: 048
  4. MINERAL OIL [Concomitant]
     Dosage: 20 ML, UNK
  5. MIRTAZAPINE [Suspect]
     Indication: ANXIETY
     Dosage: 30 MG, UNK
     Route: 048
     Dates: end: 20120703

REACTIONS (2)
  - FAECES DISCOLOURED [None]
  - CHROMATURIA [None]
